FAERS Safety Report 17767864 (Version 2)
Quarter: 2020Q3

REPORT INFORMATION
  Report Type: Spontaneous
  Country: JP (occurrence: JP)
  Receive Date: 20200511
  Receipt Date: 20200709
  Transmission Date: 20201102
  Serious: Yes (Disabling, Other)
  Sender: FDA-Public Use
  Company Number: JP-BRISTOL-MYERS SQUIBB COMPANY-BMS-2019-075211

PATIENT
  Age: 49 Year
  Sex: Female
  Weight: 49.7 kg

DRUGS (11)
  1. YERVOY [Suspect]
     Active Substance: IPILIMUMAB
     Indication: MALIGNANT MELANOMA
     Dosage: 150 MILLIGRAM, ONE TIME DOSE
     Route: 041
     Dates: start: 20190628, end: 20190628
  2. OPDIVO [Suspect]
     Active Substance: NIVOLUMAB
     Indication: MALIGNANT MELANOMA
     Dosage: 80 MILLIGRAM
     Route: 041
     Dates: start: 20190628, end: 20190628
  3. METHYCOBAL [Concomitant]
     Active Substance: METHYLCOBALAMIN
     Indication: CERVICAL RADICULOPATHY
     Dosage: 500 MILLIGRAM, TID
     Route: 048
     Dates: start: 20190523
  4. CALONAL [Concomitant]
     Active Substance: ACETAMINOPHEN
     Indication: MALIGNANT MELANOMA
     Dosage: 200 MILLIGRAM, BID
     Route: 048
     Dates: start: 20190703
  5. OPDIVO [Suspect]
     Active Substance: NIVOLUMAB
     Dosage: 240 MILLIGRAM
     Route: 041
     Dates: start: 20191211, end: 20200122
  6. CINAL S [Concomitant]
     Active Substance: VITAMINS
     Indication: CEREBRAL INFARCTION
     Dosage: 200 MILLIGRAM, TID
     Route: 048
     Dates: start: 20101028
  7. OPDIVO [Suspect]
     Active Substance: NIVOLUMAB
     Dosage: 80 MILLIGRAM
     Route: 041
     Dates: start: 20190830, end: 20190830
  8. YERVOY [Suspect]
     Active Substance: IPILIMUMAB
     Dosage: 150 MILLIGRAM, ONE TIME DOSE
     Route: 041
     Dates: start: 20191002, end: 20191002
  9. OPDIVO [Suspect]
     Active Substance: NIVOLUMAB
     Dosage: 80 MILLIGRAM, ONE TIME DOSE
     Route: 041
     Dates: start: 20191002, end: 20191002
  10. YERVOY [Suspect]
     Active Substance: IPILIMUMAB
     Dosage: 150 MILLIGRAM, ONE TIME DOSE
     Route: 041
     Dates: start: 20190830, end: 20190830
  11. LIORESAL [Concomitant]
     Active Substance: BACLOFEN
     Indication: PARAPLEGIA
     Dosage: 10 MILLIGRAM, TID
     Route: 048
     Dates: start: 200907

REACTIONS (13)
  - Eosinophil count increased [Not Recovered/Not Resolved]
  - Adrenal insufficiency [Recovering/Resolving]
  - Thyroiditis [Recovered/Resolved with Sequelae]
  - Liver disorder [Recovered/Resolved]
  - Palmar-plantar erythrodysaesthesia syndrome [Recovering/Resolving]
  - Rash maculo-papular [Recovered/Resolved]
  - Hyperthyroidism [Recovered/Resolved with Sequelae]
  - Pyrexia [Recovered/Resolved]
  - Arthritis [Recovering/Resolving]
  - Cardiac failure [Recovered/Resolved]
  - Hypothyroidism [Not Recovered/Not Resolved]
  - Abdominal distension [Recovered/Resolved]
  - Amylase increased [Not Recovered/Not Resolved]

NARRATIVE: CASE EVENT DATE: 201907
